FAERS Safety Report 9714166 (Version 3)
Quarter: 2014Q1

REPORT INFORMATION
  Report Type: Report from Study
  Country: US (occurrence: US)
  Receive Date: 20131126
  Receipt Date: 20140220
  Transmission Date: 20141002
  Serious: Yes (Death, Hospitalization)
  Sender: FDA-Public Use
  Company Number: US-ACTELION-A-US2013-87864

PATIENT
  Age: 52 Year
  Sex: Male

DRUGS (4)
  1. TRACLEER [Suspect]
     Indication: PULMONARY ARTERIAL HYPERTENSION
     Dosage: 125 MG, BID
     Route: 048
     Dates: start: 20130808, end: 20131118
  2. COUMADIN [Concomitant]
  3. ADCIRCA [Concomitant]
  4. OXYGEN [Concomitant]

REACTIONS (5)
  - Cardiac arrest [Fatal]
  - Oedema [Recovering/Resolving]
  - Swelling [Recovering/Resolving]
  - Weight increased [Unknown]
  - Rhinorrhoea [Unknown]
